FAERS Safety Report 5737739-1 (Version None)
Quarter: 2008Q2

REPORT INFORMATION
  Report Type: 
  Country: None (occurrence: None)
  Receive Date: 20080514
  Receipt Date: 20080509
  Transmission Date: 20081010
  Serious: Yes (Hospitalization, Other)
  Sender: FDA-Public Use
  Company Number: B0519657A

PATIENT
  Age: 75 Year
  Sex: Female

DRUGS (2)
  1. PAXIL [Suspect]
     Indication: DEPRESSED MOOD
     Route: 048
  2. AMITRIPTYLINE HYDROCHLORIDE [Concomitant]
     Indication: DEPRESSED MOOD
     Route: 065

REACTIONS (13)
  - AGITATION [None]
  - ALTERED STATE OF CONSCIOUSNESS [None]
  - ANXIETY [None]
  - DELUSION [None]
  - HALLUCINATION, VISUAL [None]
  - HYPERHIDROSIS [None]
  - IRRITABILITY [None]
  - MUSCLE RIGIDITY [None]
  - MYOCLONUS [None]
  - PYREXIA [None]
  - SEROTONIN SYNDROME [None]
  - STUPOR [None]
  - TREMOR [None]
